FAERS Safety Report 11553077 (Version 1)
Quarter: 2015Q3

REPORT INFORMATION
  Report Type: Spontaneous
  Country: US (occurrence: US)
  Receive Date: 20150925
  Receipt Date: 20150925
  Transmission Date: 20151125
  Serious: Yes (Hospitalization)
  Sender: FDA-Public Use
  Company Number: US-PERRIGO-15US009507

PATIENT
  Age: 16 Year
  Sex: Male

DRUGS (1)
  1. IBUPROFEN 200 MG 604 [Suspect]
     Active Substance: IBUPROFEN
     Indication: INTENTIONAL OVERDOSE
     Dosage: UP TO 1000, 200 MG TABLETS
     Route: 048

REACTIONS (4)
  - Mental status changes [Recovered/Resolved]
  - Metabolic acidosis [Recovered/Resolved]
  - Overdose [Recovered/Resolved]
  - Hypotension [Recovered/Resolved]
